FAERS Safety Report 22359724 (Version 1)
Quarter: 2023Q2

REPORT INFORMATION
  Report Type: Spontaneous
  Country: US (occurrence: None)
  Receive Date: 20230523
  Receipt Date: 20230523
  Transmission Date: 20230721
  Serious: Yes (Life-Threatening, Hospitalization, Other)
  Sender: FDA-Public Use
  Company Number: None

PATIENT
  Age: 33 Year
  Sex: Male
  Weight: 108.9 kg

DRUGS (4)
  1. FLUPHENAZINE [Suspect]
     Active Substance: FLUPHENAZINE
     Indication: Bipolar disorder
     Dosage: FREQUENCY : DAILY;?
     Route: 048
     Dates: start: 20230518, end: 20230523
  2. divalproex 250 mg DR- 1 tab BID [Concomitant]
     Dates: start: 20230518, end: 20230523
  3. aripiprazole 5 mg tab - 1 tab daily [Concomitant]
  4. thiothixene 5 mg cap - 1 cap BID [Concomitant]

REACTIONS (3)
  - Swollen tongue [None]
  - Muscle tightness [None]
  - Muscle tightness [None]

NARRATIVE: CASE EVENT DATE: 20230523
